FAERS Safety Report 6636497-6 (Version None)
Quarter: 2010Q1

REPORT INFORMATION
  Report Type: 
  Country: None (occurrence: None)
  Receive Date: 20100310
  Receipt Date: 20100224
  Transmission Date: 20100710
  Serious: Yes (Other)
  Sender: FDA-Public Use
  Company Number: 1000011582

PATIENT
  Age: 55 Year
  Sex: Female
  Weight: 44 kg

DRUGS (4)
  1. ESCITALOPRAM [Suspect]
     Indication: DEPRESSION
     Dosage: 10 MG (10 MG, 1 IN 1 D), ORAL
     Route: 048
     Dates: start: 20091001, end: 20100125
  2. LEXOMIL [Concomitant]
  3. IPERTEN [Concomitant]
  4. CELIPROLOL [Concomitant]

REACTIONS (3)
  - AGEUSIA [None]
  - DECREASED APPETITE [None]
  - WEIGHT DECREASED [None]
